FAERS Safety Report 19284256 (Version 1)
Quarter: 2021Q2

REPORT INFORMATION
  Report Type: Report from Study
  Country: CZ (occurrence: CZ)
  Receive Date: 20210521
  Receipt Date: 20210521
  Transmission Date: 20210717
  Serious: Yes (Hospitalization, Other)
  Sender: FDA-Public Use
  Company Number: CZ-BAYER-2021-101388

PATIENT
  Age: 40 Year
  Sex: Female
  Weight: 112 kg

DRUGS (1)
  1. MIRENA [Suspect]
     Active Substance: LEVONORGESTREL
     Indication: CONTRACEPTION
     Dosage: 20 ?G PER DAY, CONTINUOUSLY
     Route: 015
     Dates: start: 201801, end: 20210120

REACTIONS (7)
  - Haemoperitoneum [Recovered/Resolved]
  - Peritoneal adhesions [None]
  - Uterine perforation [Recovered/Resolved]
  - Procedural haemorrhage [Recovered/Resolved]
  - Amenorrhoea [Recovered/Resolved]
  - Device breakage [Recovered/Resolved]
  - Complication of device removal [None]

NARRATIVE: CASE EVENT DATE: 201801
